FAERS Safety Report 20345936 (Version 3)
Quarter: 2022Q2

REPORT INFORMATION
  Report Type: Spontaneous
  Country: EG (occurrence: EG)
  Receive Date: 20220118
  Receipt Date: 20220621
  Transmission Date: 20220721
  Serious: Yes (Hospitalization, Other)
  Sender: FDA-Public Use
  Company Number: EG-PFIZER INC-202101271005

PATIENT
  Age: 71 Year
  Sex: Female

DRUGS (2)
  1. IBRANCE [Suspect]
     Active Substance: PALBOCICLIB
     Indication: Breast cancer
     Dosage: 125 MG, CYCLIC (REPORTED AS ONE ^TABLET^ FROM D1 TO D21, THEN ONE WEEK OFF)
     Route: 048
  2. FASLODEX [Concomitant]
     Active Substance: FULVESTRANT
     Dosage: 500 MG, MONTHLY
     Route: 030

REACTIONS (3)
  - Jaw disorder [Unknown]
  - Glaucoma [Unknown]
  - Haemoglobin decreased [Unknown]
